FAERS Safety Report 19932740 (Version 3)
Quarter: 2021Q4

REPORT INFORMATION
  Report Type: Report from Study
  Country: TH (occurrence: TH)
  Receive Date: 20211008
  Receipt Date: 20211019
  Transmission Date: 20220303
  Serious: Yes (Hospitalization)
  Sender: FDA-Public Use
  Company Number: TH-EISAI MEDICAL RESEARCH-EC-2021-099873

PATIENT
  Age: 66 Year
  Sex: Female

DRUGS (1)
  1. HALAVEN [Suspect]
     Active Substance: ERIBULIN MESYLATE
     Indication: Breast cancer metastatic
     Route: 042
     Dates: start: 20210804, end: 202110

REACTIONS (7)
  - Mouth haemorrhage [Recovering/Resolving]
  - Delirium [Recovering/Resolving]
  - Oral pain [Recovering/Resolving]
  - Leukopenia [Recovering/Resolving]
  - Mouth ulceration [Recovering/Resolving]
  - Choking [Not Recovered/Not Resolved]
  - Pyrexia [Not Recovered/Not Resolved]

NARRATIVE: CASE EVENT DATE: 20210915
